FAERS Safety Report 5537402-6 (Version None)
Quarter: 2007Q4

REPORT INFORMATION
  Report Type: 
  Country: None (occurrence: None)
  Receive Date: 20071207
  Receipt Date: 20071130
  Transmission Date: 20080405
  Serious: Yes (Life-Threatening, Hospitalization)
  Sender: FDA-Public Use
  Company Number: B0496634A

PATIENT
  Age: 85 Year
  Sex: Male
  Weight: 54 kg

DRUGS (3)
  1. PAXIL [Suspect]
     Indication: DEPRESSION
     Dosage: 10MG PER DAY
     Route: 048
     Dates: start: 20070701, end: 20071107
  2. PAXIL [Suspect]
     Dosage: 20MG PER DAY
     Route: 048
     Dates: start: 20071108, end: 20071116
  3. DOGMATYL [Suspect]
     Indication: ANOREXIA
     Route: 048
     Dates: start: 20071113, end: 20071116

REACTIONS (9)
  - ACTIVATION SYNDROME [None]
  - ANOREXIA [None]
  - CARDIO-RESPIRATORY ARREST [None]
  - DEPRESSED LEVEL OF CONSCIOUSNESS [None]
  - DEPRESSION [None]
  - HYPOXIC ENCEPHALOPATHY [None]
  - MALAISE [None]
  - PNEUMONIA ASPIRATION [None]
  - SUICIDE ATTEMPT [None]
